FAERS Safety Report 19314234 (Version 1)
Quarter: 2021Q2

REPORT INFORMATION
  Report Type: Spontaneous
  Country: US (occurrence: US)
  Receive Date: 20210527
  Receipt Date: 20210527
  Transmission Date: 20210717
  Serious: Yes (Death, Hospitalization)
  Sender: FDA-Public Use
  Company Number: None

PATIENT
  Age: 72 Year
  Weight: 98.1 kg

DRUGS (1)
  1. TOPOTECAN [Suspect]
     Active Substance: TOPOTECAN HYDROCHLORIDE
     Dates: end: 20210319

REACTIONS (18)
  - Purpura [None]
  - Mouth haemorrhage [None]
  - Metabolic acidosis [None]
  - Dyspnoea [None]
  - Cardiac failure [None]
  - Malignant neoplasm progression [None]
  - Acute kidney injury [None]
  - Lactic acidosis [None]
  - Back pain [None]
  - Atelectasis [None]
  - Pancytopenia [None]
  - Chest pain [None]
  - Tachypnoea [None]
  - Thrombocytopenia [None]
  - Tachycardia [None]
  - Renal failure [None]
  - Pulmonary haematoma [None]
  - Hepatic failure [None]

NARRATIVE: CASE EVENT DATE: 20210516
